FAERS Safety Report 14266448 (Version 1)
Quarter: 2017Q4

REPORT INFORMATION
  Report Type: Spontaneous
  Country: US (occurrence: US)
  Receive Date: 20171208
  Receipt Date: 20171208
  Transmission Date: 20180321
  Serious: Yes (Other)
  Sender: FDA-Public Use
  Company Number: None

PATIENT
  Age: 11 Year
  Sex: Male
  Weight: 31.05 kg

DRUGS (2)
  1. METHYLPHENIDATE HC TABLET EXTENDED RELEASE [Suspect]
     Active Substance: METHYLPHENIDATE HYDROCHLORIDE
     Indication: ATTENTION DEFICIT/HYPERACTIVITY DISORDER
     Route: 048
     Dates: start: 20171027, end: 20171127
  2. FLUOXETINE [Concomitant]
     Active Substance: FLUOXETINE HYDROCHLORIDE

REACTIONS (6)
  - Social avoidant behaviour [None]
  - Product substitution issue [None]
  - Appetite disorder [None]
  - Product label issue [None]
  - Drug effect decreased [None]
  - Product dosage form issue [None]
